FAERS Safety Report 8268013-X (Version None)
Quarter: 2012Q2

REPORT INFORMATION
  Report Type: 
  Country: None (occurrence: None)
  Receive Date: 20120409
  Receipt Date: 20120402
  Transmission Date: 20120825
  Serious: Yes (Hospitalization)
  Sender: FDA-Public Use
  Company Number: US-UCBSA-054569

PATIENT
  Age: 67 Year
  Sex: Female
  Weight: 91.7 kg

DRUGS (11)
  1. CERTOLIZUMAB PEGOL [Suspect]
     Indication: RHEUMATOID ARTHRITIS
     Dosage: NBR. OF DOSES RECEIVED: 13
     Route: 058
     Dates: start: 20111005
  2. MOTRIN [Concomitant]
     Indication: RHEUMATOID ARTHRITIS
     Dates: start: 20100101
  3. TOBRAMYCIN-DEXAMETHASONE [Concomitant]
     Indication: CONJUNCTIVITIS
     Route: 047
     Dates: start: 20111213
  4. LORTAB [Concomitant]
     Indication: RHEUMATOID ARTHRITIS
     Dosage: 2 TABLETS (5/500)
     Dates: start: 20100911
  5. COUMADIN [Concomitant]
     Indication: THROMBOSIS PROPHYLAXIS
     Dosage: DOSE PER INTAKE-6 MG ON MONDAY,TUESDAY + WEDNESDAY,3 MG ON THURSDAY,FRIDAY AND SATURDAY
     Dates: start: 20100101
  6. FOSAMAX [Concomitant]
     Indication: OSTEOPOROSIS
     Dosage: ONCE A WEEK
     Dates: start: 20060518
  7. CERTOLIZUMAB PEGOL [Suspect]
     Dosage: NO OF DOSES RECEIVED-3
     Route: 058
     Dates: start: 20110823, end: 20110921
  8. LANTUS [Concomitant]
     Indication: DIABETES MELLITUS
     Dosage: DOSE PER INTAKE-60 UNITS
     Dates: start: 20101023
  9. ZOCOR [Concomitant]
     Indication: HYPERCHOLESTEROLAEMIA
     Dates: start: 20081016
  10. VITAMIN D [Concomitant]
     Indication: MEDICAL DIET
     Dates: start: 20080101
  11. FLEXPEN [Concomitant]
     Indication: DIABETES MELLITUS
     Route: 058
     Dates: start: 20110909

REACTIONS (1)
  - STAPHYLOCOCCAL INFECTION [None]
